FAERS Safety Report 7978489-0 (Version None)
Quarter: 2011Q4

REPORT INFORMATION
  Report Type: 
  Country: None (occurrence: None)
  Receive Date: 20111214
  Receipt Date: 20111206
  Transmission Date: 20120403
  Serious: Yes (Disabling)
  Sender: FDA-Public Use
  Company Number: FI-JNJFOC-20090505820

PATIENT
  Sex: Male

DRUGS (7)
  1. SYMBICORT [Concomitant]
     Indication: CHRONIC OBSTRUCTIVE PULMONARY DISEASE
     Route: 065
     Dates: start: 20080901
  2. SPIRIVA [Concomitant]
     Indication: CHRONIC OBSTRUCTIVE PULMONARY DISEASE
     Route: 055
     Dates: start: 20080901
  3. OMEPRAZOLE [Concomitant]
     Route: 065
  4. ACETYLSALICYLIC ACID SRT [Concomitant]
     Route: 065
  5. IBUPROFEN [Concomitant]
     Route: 065
  6. LEVOFLOXACIN [Suspect]
     Indication: UPPER RESPIRATORY TRACT INFECTION
     Route: 048
     Dates: start: 20090429, end: 20090430
  7. RAMIPRIL [Concomitant]
     Indication: HYPERTENSION
     Route: 048
     Dates: start: 20090101

REACTIONS (4)
  - GENERAL PHYSICAL HEALTH DETERIORATION [None]
  - TENDONITIS [None]
  - ASTHENIA [None]
  - MUSCLE SPASMS [None]
